FAERS Safety Report 21732450 (Version 1)
Quarter: 2022Q4

REPORT INFORMATION
  Report Type: Spontaneous
  Country: US (occurrence: US)
  Receive Date: 20221215
  Receipt Date: 20221215
  Transmission Date: 20230113
  Serious: Yes (Other)
  Sender: FDA-Public Use
  Company Number: US-SA-SAC20221214000609

PATIENT
  Age: 45 Year
  Sex: Female

DRUGS (1)
  1. AUBAGIO [Suspect]
     Active Substance: TERIFLUNOMIDE
     Indication: Multiple sclerosis
     Dosage: 14 MG, QD
     Route: 048

REACTIONS (6)
  - Osteonecrosis [Unknown]
  - Hypothyroidism [Unknown]
  - Skin ulcer [Recovering/Resolving]
  - Hypertension [Recovering/Resolving]
  - Headache [Recovered/Resolved]
  - Hysterectomy [Unknown]

NARRATIVE: CASE EVENT DATE: 20220701
